FAERS Safety Report 16419797 (Version 1)
Quarter: 2019Q2

REPORT INFORMATION
  Report Type: Spontaneous
  Country: US (occurrence: US)
  Receive Date: 20190612
  Receipt Date: 20190612
  Transmission Date: 20190711
  Serious: No
  Sender: FDA-Public Use
  Company Number: US-MYLANLABS-2019M1049670

PATIENT
  Sex: Female

DRUGS (1)
  1. LEVOTHYROXINE. [Suspect]
     Active Substance: LEVOTHYROXINE
     Indication: PRODUCT USED FOR UNKNOWN INDICATION
     Dosage: UNK
     Route: 065
     Dates: end: 20150515

REACTIONS (10)
  - Confusional state [Unknown]
  - Eye pain [Unknown]
  - Dyspnoea [Unknown]
  - Joint swelling [Unknown]
  - Clumsiness [Unknown]
  - Vision blurred [Unknown]
  - Abnormal dreams [Unknown]
  - Feeling abnormal [Unknown]
  - Peripheral swelling [Unknown]
  - Irritability [Unknown]
